FAERS Safety Report 7290841-8 (Version None)
Quarter: 2011Q1

REPORT INFORMATION
  Report Type: 
  Country: None (occurrence: None)
  Receive Date: 20110201
  Receipt Date: 20110126
  Transmission Date: 20110831
  Serious: Yes (Hospitalization, Other)
  Sender: FDA-Public Use
  Company Number: FR-000266

PATIENT
  Sex: Male
  Weight: 13.5 kg

DRUGS (8)
  1. ACETAMINOPHEN [Concomitant]
  2. WARFARIN [Concomitant]
  3. HYDROXYZINE [Concomitant]
  4. NAGLAZYME [Suspect]
     Indication: MUCOPOLYSACCHARIDOSIS VI
     Dosage: SEE IMAGE: INTRAVENOUS DRIP
     Route: 041
     Dates: start: 20090629
  5. NAGLAZYME [Suspect]
     Indication: MUCOPOLYSACCHARIDOSIS VI
     Dosage: SEE IMAGE: INTRAVENOUS DRIP
     Route: 041
     Dates: start: 20070201, end: 20080610
  6. NAGLAZYME [Suspect]
     Indication: MUCOPOLYSACCHARIDOSIS VI
     Dosage: SEE IMAGE: INTRAVENOUS DRIP
     Route: 041
     Dates: start: 20080601, end: 20080801
  7. NAGLAZYME [Suspect]
     Indication: MUCOPOLYSACCHARIDOSIS VI
     Dosage: SEE IMAGE: INTRAVENOUS DRIP
     Route: 041
     Dates: end: 20090923
  8. PARACETAMOL [Concomitant]

REACTIONS (11)
  - NEPHROTIC SYNDROME [None]
  - HYDRONEPHROSIS [None]
  - DISEASE RECURRENCE [None]
  - RENAL FAILURE [None]
  - NEPHRITIC SYNDROME [None]
  - NEPHROLITHIASIS [None]
  - PULMONARY HYPERTENSION [None]
  - DISEASE PROGRESSION [None]
  - GLOMERULONEPHRITIS MEMBRANOUS [None]
  - KNEE OPERATION [None]
  - MUCOPOLYSACCHARIDOSIS [None]
